FAERS Safety Report 8606660-3 (Version None)
Quarter: 2012Q3

REPORT INFORMATION
  Report Type: 
  Country: None (occurrence: None)
  Receive Date: 20120820
  Receipt Date: 20120813
  Transmission Date: 20120928
  Serious: Yes (Other)
  Sender: FDA-Public Use
  Company Number: US-PFIZER INC-2012198527

PATIENT
  Age: 64 Year
  Sex: Female
  Weight: 72.562 kg

DRUGS (4)
  1. PREMARIN [Suspect]
     Indication: VULVOVAGINAL DRYNESS
     Dosage: UNK
     Route: 067
     Dates: end: 20120101
  2. ESTRADIOL [Suspect]
     Indication: BONE DISORDER
     Dosage: 1 MG, DAILY
     Dates: end: 20120101
  3. HUMULIN 70/30 [Concomitant]
     Indication: DIABETES MELLITUS
     Dosage: UNK, 2X/DAY
  4. PREMARIN [Suspect]
     Indication: BONE DISORDER
     Dosage: 0.625 MG, DAILY
     Route: 048

REACTIONS (6)
  - OFF LABEL USE [None]
  - VAGINAL HAEMORRHAGE [None]
  - BLOOD COUNT ABNORMAL [None]
  - CERVIX NEOPLASM [None]
  - UTERINE ENLARGEMENT [None]
  - CERVIX ENLARGEMENT [None]
